FAERS Safety Report 20246904 (Version 1)
Quarter: 2021Q4

REPORT INFORMATION
  Report Type: Other
  Country: JP (occurrence: None)
  Receive Date: 20211229
  Receipt Date: 20211229
  Transmission Date: 20220303
  Serious: Yes (Death, Other)
  Sender: FDA-Public Use
  Company Number: JP-ROCHE-2988828

PATIENT

DRUGS (4)
  1. TOCILIZUMAB [Suspect]
     Active Substance: TOCILIZUMAB
     Indication: Rheumatoid arthritis
     Route: 065
  2. METHOTREXATE [Suspect]
     Active Substance: METHOTREXATE
     Indication: Rheumatoid arthritis
     Route: 065
  3. ABATACEPT [Suspect]
     Active Substance: ABATACEPT
     Indication: Rheumatoid arthritis
     Route: 065
  4. PREDNISONE [Suspect]
     Active Substance: PREDNISONE
     Indication: Rheumatoid arthritis
     Route: 065

REACTIONS (24)
  - Sudden death [Fatal]
  - Pneumonia bacterial [Unknown]
  - Urinary tract infection [Unknown]
  - Arthritis bacterial [Unknown]
  - Bacterial myositis [Unknown]
  - Liver abscess [Unknown]
  - Sepsis [Unknown]
  - Pneumocystis jirovecii pneumonia [Unknown]
  - Tuberculosis [Unknown]
  - Pneumonia fungal [Unknown]
  - Herpes zoster [Unknown]
  - Angina pectoris [Unknown]
  - Acute myocardial infarction [Unknown]
  - Cardiac failure acute [Unknown]
  - Spinal compression fracture [Unknown]
  - Femoral neck fracture [Unknown]
  - Interstitial lung disease [Unknown]
  - Organising pneumonia [Unknown]
  - Pleurisy [Unknown]
  - Interstitial lung disease [Unknown]
  - Prostate cancer [Unknown]
  - Lung neoplasm malignant [Unknown]
  - Oesophageal carcinoma [Unknown]
  - Gastric cancer [Unknown]
